FAERS Safety Report 10856160 (Version 2)
Quarter: 2015Q2

REPORT INFORMATION
  Report Type: Spontaneous
  Country: US (occurrence: None)
  Receive Date: 20150210
  Receipt Date: 20150505
  Transmission Date: 20150821
  Serious: Yes (Death)
  Sender: FDA-Public Use
  Company Number: BTG00205

PATIENT
  Age: 80 Year
  Sex: Female

DRUGS (2)
  1. DIGIFAB [Suspect]
     Active Substance: OVINE DIGOXIN IMMUNE FAB
     Indication: PRODUCT USED FOR UNKNOWN INDICATION
     Dates: start: 20150127
  2. DIGOXIN (BETA-ACETYLDIGOXIN) [Suspect]
     Active Substance: .BETA.-ACETYLDIGOXIN
     Indication: PRODUCT USED FOR UNKNOWN INDICATION
     Route: 042

REACTIONS (4)
  - Anuria [None]
  - Rebound effect [None]
  - Blood creatinine increased [None]
  - Cardioactive drug level increased [None]

NARRATIVE: CASE EVENT DATE: 20150128
